FAERS Safety Report 9597224 (Version 1)
Quarter: 2013Q4

REPORT INFORMATION
  Report Type: Spontaneous
  Country: US (occurrence: US)
  Receive Date: 20131004
  Receipt Date: 20131004
  Transmission Date: 20140711
  Serious: No
  Sender: FDA-Public Use
  Company Number: US-AMGEN-USASP2013018187

PATIENT
  Age: 59 Year
  Sex: Female

DRUGS (13)
  1. ENBREL [Suspect]
     Indication: PRODUCT USED FOR UNKNOWN INDICATION
     Dosage: 50 MG, QWK
     Route: 058
  2. ADVAIR [Concomitant]
     Dosage: 100/50
  3. XOPENEX [Concomitant]
     Dosage: 1.25/0.5 %
  4. FLONASE [Concomitant]
     Dosage: 0.05 %, UNK
  5. SOMA [Concomitant]
     Dosage: 250 MG, UNK
  6. XANAX [Concomitant]
     Dosage: 0.25 MG, UNK
  7. ZOLPIDEM [Concomitant]
     Dosage: 5 MG, UNK
  8. PREMARIN [Concomitant]
     Dosage: 25 MG, UNK
  9. HYDROCHLOROTH [Concomitant]
     Dosage: 12.5 MG, UNK
  10. LEVOTHYROXINE [Concomitant]
     Dosage: 500 MUG, UNK
  11. PANTOPRAZOLE [Concomitant]
     Dosage: 20 MG, UNK
  12. HYDROMORPHON AL [Concomitant]
     Dosage: 2 MG, UNK
  13. ST. JOHN^S WORT                    /01166801/ [Concomitant]
     Dosage: 150 MG, UNK

REACTIONS (1)
  - Influenza like illness [Unknown]
